FAERS Safety Report 7553880-5 (Version None)
Quarter: 2011Q2

REPORT INFORMATION
  Report Type: 
  Country: None (occurrence: None)
  Receive Date: 20110617
  Receipt Date: 20110602
  Transmission Date: 20111010
  Serious: Yes (Hospitalization)
  Sender: FDA-Public Use
  Company Number: US-JNJFOC-20110602102

PATIENT
  Sex: Female
  Weight: 77.11 kg

DRUGS (1)
  1. REMICADE [Suspect]
     Indication: CROHN'S DISEASE
     Route: 042
     Dates: start: 20090101

REACTIONS (7)
  - COLECTOMY [None]
  - INTRACRANIAL ANEURYSM [None]
  - CEREBROVASCULAR ACCIDENT [None]
  - INFUSION RELATED REACTION [None]
  - HEADACHE [None]
  - DYSPNOEA [None]
  - URTICARIA [None]
